FAERS Safety Report 15165026 (Version 1)
Quarter: 2018Q3

REPORT INFORMATION
  Report Type: Spontaneous
  Country: US (occurrence: US)
  Receive Date: 20180621
  Receipt Date: 20180621
  Transmission Date: 20181010
  Serious: Yes (Other)
  Sender: FDA-Public Use
  Company Number: None

PATIENT
  Age: 51 Year
  Sex: Male
  Weight: 99 kg

DRUGS (15)
  1. ROSUVASTATIN. [Concomitant]
     Active Substance: ROSUVASTATIN
  2. WALGREENS MENS MULTIVITAMIN [Concomitant]
  3. GEMFIBROZIL. [Concomitant]
     Active Substance: GEMFIBROZIL
  4. ANDROGEL [Concomitant]
     Active Substance: TESTOSTERONE
  5. CETERIZINE [Concomitant]
     Active Substance: CETIRIZINE HYDROCHLORIDE
  6. NOVOLOG [Concomitant]
     Active Substance: INSULIN ASPART
  7. ASPIRIN. [Concomitant]
     Active Substance: ASPIRIN
  8. FLUTICASONE PROPIONATE NASAL SPRAY [Suspect]
     Active Substance: FLUTICASONE PROPIONATE
     Indication: NASAL CONGESTION
     Dosage: ?          QUANTITY:2 SPRAY(S);?
     Route: 055
     Dates: start: 20150513, end: 20180515
  9. FISH OIL [Concomitant]
     Active Substance: FISH OIL
  10. FLUTICASONE PROPIONATE NASAL SPRAY [Suspect]
     Active Substance: FLUTICASONE PROPIONATE
     Indication: MULTIPLE ALLERGIES
     Dosage: ?          QUANTITY:2 SPRAY(S);?
     Route: 055
     Dates: start: 20150513, end: 20180515
  11. TRESIBA [Concomitant]
     Active Substance: INSULIN DEGLUDEC
  12. LABETALOL [Concomitant]
     Active Substance: LABETALOL\LABETALOL HYDROCHLORIDE
  13. LOSARTAN. [Concomitant]
     Active Substance: LOSARTAN
  14. SILIDENFAL [Concomitant]
  15. CPAP [Concomitant]
     Active Substance: DEVICE

REACTIONS (5)
  - Poor quality drug administered [None]
  - Nasal septum perforation [None]
  - Product contamination physical [None]
  - Epistaxis [None]
  - Product quality issue [None]

NARRATIVE: CASE EVENT DATE: 20180515
